FAERS Safety Report 7145700 (Version 2)
Quarter: 2014Q3

REPORT INFORMATION
  Report Type: Spontaneous
  Country: US (occurrence: None)
  Receive Date: 20090928
  Receipt Date: 20140812
  Transmission Date: 20150326
  Serious: No
  Sender: FDA-Public Use
  Company Number: 2009S1007236

PATIENT
  Age: 66 Year
  Sex: Male
  Weight: 91 kg

DRUGS (9)
  1. FEOSOL (FERROUS SULFATE) [Concomitant]
  2. DYNACIRC (ISRADIPINE) [Concomitant]
  3. ZOCOR [Concomitant]
     Active Substance: SIMVASTATIN
  4. CATAPRES-TTS (CLONIDINE) [Concomitant]
  5. PHOSPHO-SODA [Suspect]
     Active Substance: SODIUM PHOSPHATE, DIBASIC\SODIUM PHOSPHATE, MONOBASIC
     Indication: COLONOSCOPY
     Dosage: PO; PO
     Route: 048
     Dates: start: 20040902, end: 20040902
  6. SINGULAIR /01362601/ (MONTELUKAST SODIUM) [Concomitant]
  7. ZANTAC /00550802/ (RANITIDINE HYDROCHLORIDE) [Concomitant]
  8. BABY ASPIRIN (ACETYLSALICYLIC ACID) [Concomitant]
     Active Substance: ASPIRIN
  9. MULTIVITAMIN /00831701 [Concomitant]

REACTIONS (19)
  - Renal cyst [None]
  - Microcytic anaemia [None]
  - Presyncope [None]
  - Dizziness [None]
  - Nephrosclerosis [None]
  - Peritoneal dialysis [None]
  - Weight decreased [None]
  - Hypertension [None]
  - Dialysis [None]
  - Renal failure acute [None]
  - Hyperphosphataemia [None]
  - Renal failure chronic [None]
  - Iron deficiency anaemia [None]
  - Night sweats [None]
  - Antinuclear antibody positive [None]
  - Palpitations [None]
  - Blood pressure increased [None]
  - Lymphadenopathy mediastinal [None]
  - Gastrointestinal arteriovenous malformation [None]
